FAERS Safety Report 20334002 (Version 2)
Quarter: 2022Q1

REPORT INFORMATION
  Report Type: Spontaneous
  Country: US (occurrence: US)
  Receive Date: 20220113
  Receipt Date: 20220114
  Transmission Date: 20220423
  Serious: Yes (Death)
  Sender: FDA-Public Use
  Company Number: US-CELGENE-USA-20220102052

PATIENT
  Sex: Male
  Weight: 91 kg

DRUGS (1)
  1. ABECMA [Suspect]
     Active Substance: IDECABTAGENE VICLEUCEL
     Indication: Plasma cell myeloma
     Dosage: 363.26 X 10^6 CAR T CELL?4 BAGS
     Route: 041
     Dates: start: 20211220, end: 20211220

REACTIONS (3)
  - Sepsis [Fatal]
  - Cytokine release syndrome [Fatal]
  - Neurotoxicity [Fatal]
